FAERS Safety Report 5915658-5 (Version None)
Quarter: 2008Q4

REPORT INFORMATION
  Report Type: 
  Country: None (occurrence: None)
  Receive Date: 20081010
  Receipt Date: 20081007
  Transmission Date: 20090506
  Serious: Yes (Hospitalization)
  Sender: FDA-Public Use
  Company Number: US-ASTRAZENECA-2008UW21819

PATIENT
  Sex: Female
  Weight: 56.7 kg

DRUGS (9)
  1. ATACAND [Suspect]
     Indication: HYPERTENSION
     Route: 048
     Dates: start: 20060619
  2. CADUET [Suspect]
     Indication: HYPERLIPIDAEMIA
     Route: 048
     Dates: start: 20060619
  3. PALMAZ GENESIS TRANSHEPATIC BILIARY SYSTEM AVIATOR [Suspect]
  4. ANGIOGUARD SHORT TIP EMBOLI CAPTURE GUIDEWIRE SYSTEM [Suspect]
  5. SYNTHROID [Concomitant]
  6. GLUCOTROL [Concomitant]
  7. LOPRESSOR [Concomitant]
  8. PLAVIX [Concomitant]
  9. FOSAMAX [Concomitant]

REACTIONS (1)
  - SYNCOPE [None]
